FAERS Safety Report 5658131-4 (Version None)
Quarter: 2008Q1

REPORT INFORMATION
  Report Type: 
  Country: None (occurrence: None)
  Receive Date: 20080306
  Receipt Date: 20080303
  Transmission Date: 20080703
  Serious: Yes (Other)
  Sender: FDA-Public Use
  Company Number: 024650

PATIENT
  Sex: Female

DRUGS (5)
  1. AYGESTIN [Suspect]
     Dosage: ORAL
     Route: 048
     Dates: start: 19970101, end: 19980601
  2. ESTRADIOL [Suspect]
     Dosage: ORAL
     Route: 048
     Dates: start: 19970101, end: 19980601
  3. MEDROXYPROGESTERONE [Suspect]
     Dosage: ORAL
     Route: 048
     Dates: start: 19970101, end: 19980601
  4. PROVERA [Suspect]
     Dosage: ORAL
     Route: 048
     Dates: start: 19970101, end: 19980601
  5. ESTRACE [Suspect]
     Dates: start: 19970101, end: 19980601

REACTIONS (1)
  - BREAST CANCER FEMALE [None]
